FAERS Safety Report 5014625-6 (Version None)
Quarter: 2006Q2

REPORT INFORMATION
  Report Type: 
  Country: None (occurrence: None)
  Receive Date: 20060531
  Receipt Date: 20060510
  Transmission Date: 20061013
  Serious: Yes (Death)
  Sender: FDA-Public Use
  Company Number: 2006SE02673

PATIENT
  Age: 34 Year
  Sex: Male

DRUGS (2)
  1. SEROQUEL [Suspect]
     Indication: SCHIZOPHRENIA
     Route: 048
     Dates: start: 20060201, end: 20060401
  2. SEROQUEL [Suspect]
     Route: 048
     Dates: start: 20060401

REACTIONS (7)
  - ARTERIOSCLEROSIS [None]
  - BLOOD PRESSURE INCREASED [None]
  - BRONCHOPNEUMONIA [None]
  - CHEST PAIN [None]
  - MYELOFIBROSIS [None]
  - PULMONARY EMBOLISM [None]
  - SEPSIS [None]
